FAERS Safety Report 7006446-X (Version None)
Quarter: 2010Q3

REPORT INFORMATION
  Report Type: 
  Country: None (occurrence: None)
  Receive Date: 20100921
  Receipt Date: 20100914
  Transmission Date: 20110219
  Serious: Yes (Other)
  Sender: FDA-Public Use
  Company Number: SE-MERCK-1009SWE00024

PATIENT
  Sex: Female

DRUGS (3)
  1. ZETIA [Suspect]
     Route: 048
  2. LIPITOR [Concomitant]
     Route: 065
  3. CRESTOR [Concomitant]
     Route: 065

REACTIONS (1)
  - COLON CANCER [None]
